FAERS Safety Report 7032848-1 (Version None)
Quarter: 2010Q4

REPORT INFORMATION
  Report Type: 
  Country: None (occurrence: None)
  Receive Date: 20101007
  Receipt Date: 20091119
  Transmission Date: 20110411
  Serious: No
  Sender: FDA-Public Use
  Company Number: US-PFIZER INC-2009300885

PATIENT
  Sex: Female

DRUGS (1)
  1. MECLIZINE HCL [Suspect]
     Dosage: UNK

REACTIONS (2)
  - DIZZINESS [None]
  - HEADACHE [None]
